FAERS Safety Report 8009430-2 (Version None)
Quarter: 2011Q4

REPORT INFORMATION
  Report Type: 
  Country: None (occurrence: None)
  Receive Date: 20111227
  Receipt Date: 20111221
  Transmission Date: 20120403
  Serious: Yes (Other)
  Sender: FDA-Public Use
  Company Number: GR-ROCHE-1024317

PATIENT
  Age: 40 Year
  Sex: Female

DRUGS (2)
  1. MABTHERA [Suspect]
     Indication: PRODUCT USED FOR UNKNOWN INDICATION
     Route: 042
     Dates: start: 20111101
  2. CORTICOSTEROID NOS [Concomitant]

REACTIONS (3)
  - MACULE [None]
  - PRURITUS [None]
  - ALOPECIA [None]
